FAERS Safety Report 7524409-2 (Version None)
Quarter: 2011Q2

REPORT INFORMATION
  Report Type: 
  Country: None (occurrence: None)
  Receive Date: 20110606
  Receipt Date: 20110523
  Transmission Date: 20111010
  Serious: No
  Sender: FDA-Public Use
  Company Number: PHHY2011FR46145

PATIENT
  Age: 40 Year

DRUGS (2)
  1. TERBINAFINE HCL [Suspect]
     Dosage: 6 DF DAILY
     Route: 048
  2. LAMISIL [Suspect]
     Dosage: 6 DF, QD
     Route: 048

REACTIONS (3)
  - ABDOMINAL DISCOMFORT [None]
  - OVERDOSE [None]
  - DRUG PRESCRIBING ERROR [None]
